FAERS Safety Report 10496323 (Version 1)
Quarter: 2014Q4

REPORT INFORMATION
  Report Type: Spontaneous
  Country: US (occurrence: US)
  Receive Date: 20141003
  Receipt Date: 20141003
  Transmission Date: 20150528
  Serious: No
  Sender: FDA-Public Use
  Company Number: US-009507513-1409USA014988

PATIENT
  Sex: Female

DRUGS (1)
  1. ASMANEX [Suspect]
     Active Substance: MOMETASONE FUROATE
     Dosage: 1 DF, BID (1 PUFF TWICE DAILY), 1 STANDARD DOSE OF 30
     Route: 055

REACTIONS (3)
  - No adverse event [Unknown]
  - Incorrect dose administered [Unknown]
  - Product quality issue [Unknown]
